FAERS Safety Report 12340075 (Version 3)
Quarter: 2016Q2

REPORT INFORMATION
  Report Type: Spontaneous
  Country: GB (occurrence: GB)
  Receive Date: 20160506
  Receipt Date: 20160616
  Transmission Date: 20160815
  Serious: Yes (Other)
  Sender: FDA-Public Use
  Company Number: GB-ROCHE-1750254

PATIENT
  Age: 59 Year
  Sex: Female

DRUGS (1)
  1. ERIVEDGE [Suspect]
     Active Substance: VISMODEGIB
     Indication: BASAL CELL CARCINOMA
     Dosage: 70 WEEKS.
     Route: 065

REACTIONS (4)
  - Alopecia [Unknown]
  - Therapy responder [Unknown]
  - Hepatotoxicity [Unknown]
  - Ageusia [Unknown]
